FAERS Safety Report 4806414-X (Version None)
Quarter: 2005Q4

REPORT INFORMATION
  Report Type: 
  Country: None (occurrence: None)
  Receive Date: 20051019
  Receipt Date: 20051007
  Transmission Date: 20060501
  Serious: Yes (Other)
  Sender: FDA-Public Use
  Company Number: 2005135128

PATIENT
  Sex: Female

DRUGS (2)
  1. ZYRTEC-D 12 HOUR [Suspect]
  2. ZITHROMAX [Suspect]
     Indication: ILL-DEFINED DISORDER

REACTIONS (4)
  - AGEUSIA [None]
  - ANOSMIA [None]
  - HYPOACUSIS [None]
  - VISUAL ACUITY REDUCED [None]
